FAERS Safety Report 21327741 (Version 1)
Quarter: 2022Q3

REPORT INFORMATION
  Report Type: Spontaneous
  Country: US (occurrence: None)
  Receive Date: 20220912
  Receipt Date: 20220912
  Transmission Date: 20221026
  Serious: Yes (Other)
  Sender: FDA-Public Use
  Company Number: None

PATIENT
  Age: 34 Year
  Sex: Female

DRUGS (3)
  1. PAXLOVID [Suspect]
     Active Substance: NIRMATRELVIR\RITONAVIR
     Indication: COVID-19
     Dates: start: 20220908
  2. CVS mucus: phenylephrine, guaifenesin, dextromethorphan [Concomitant]
  3. HERBALS [Concomitant]
     Active Substance: HERBALS

REACTIONS (1)
  - Dizziness [None]

NARRATIVE: CASE EVENT DATE: 20220908
